FAERS Safety Report 7203615-0 (Version None)
Quarter: 2010Q4

REPORT INFORMATION
  Report Type: 
  Country: None (occurrence: None)
  Receive Date: 20101228
  Receipt Date: 20101228
  Transmission Date: 20110411
  Serious: Yes (Life-Threatening, Hospitalization)
  Sender: FDA-Public Use
  Company Number: None

PATIENT
  Age: 50 Year
  Sex: Male
  Weight: 73.4827 kg

DRUGS (4)
  1. RIBASPHERE [Suspect]
  2. PERCOCET [Concomitant]
  3. RANITIDINE [Concomitant]
  4. XANAX [Concomitant]

REACTIONS (3)
  - ABNORMAL BEHAVIOUR [None]
  - AMNESIA [None]
  - PHYSICAL ASSAULT [None]
